FAERS Safety Report 14425916 (Version 3)
Quarter: 2018Q1

REPORT INFORMATION
  Report Type: Spontaneous
  Country: US (occurrence: US)
  Receive Date: 20180123
  Receipt Date: 20180316
  Transmission Date: 20180509
  Serious: Yes (Hospitalization, Other)
  Sender: FDA-Public Use
  Company Number: US-PFIZER INC-2018027708

PATIENT
  Age: 79 Year
  Sex: Female
  Weight: 56 kg

DRUGS (4)
  1. RAPAMUNE [Suspect]
     Active Substance: SIROLIMUS
     Dosage: 2 MG, DAILY
     Route: 048
     Dates: start: 20150818
  2. RAPAMUNE [Suspect]
     Active Substance: SIROLIMUS
     Indication: LIVER TRANSPLANT
     Dosage: 4 MG, DAILY
     Route: 048
     Dates: start: 20120710
  3. RAPAMUNE [Suspect]
     Active Substance: SIROLIMUS
     Dosage: UNK
     Route: 048
  4. RAPAMUNE [Suspect]
     Active Substance: SIROLIMUS
     Indication: PROPHYLAXIS AGAINST TRANSPLANT REJECTION
     Dosage: 5 MG, DAILY
     Route: 048
     Dates: start: 20101108

REACTIONS (2)
  - End stage renal disease [Recovered/Resolved]
  - Renal failure [Recovered/Resolved]
